FAERS Safety Report 21666516 (Version 2)
Quarter: 2022Q4

REPORT INFORMATION
  Report Type: Spontaneous
  Country: US (occurrence: US)
  Receive Date: 20221201
  Receipt Date: 20221215
  Transmission Date: 20230112
  Serious: Yes (Hospitalization, Other)
  Sender: FDA-Public Use
  Company Number: US-TEVA-2022-US-2830390

PATIENT
  Age: 31 Year
  Sex: Female

DRUGS (6)
  1. MYCOPHENOLATE MOFETIL [Suspect]
     Active Substance: MYCOPHENOLATE MOFETIL
     Indication: Prophylaxis against graft versus host disease
     Dosage: STARTED ON POST TRANSPLANT DAY 5
     Route: 065
  2. DECITABINE [Suspect]
     Active Substance: DECITABINE
     Indication: Myelodysplastic syndrome
     Dosage: SCHEDULED ON DAYS 1-10
     Route: 065
  3. VYXEOS [Suspect]
     Active Substance: CYTARABINE\DAUNORUBICIN
     Indication: Myelodysplastic syndrome
     Dosage: 100 UNITS/M2 ON DAYS 1, 3, 5
     Route: 065
  4. ECULIZUMAB [Suspect]
     Active Substance: ECULIZUMAB
     Indication: Atypical haemolytic uraemic syndrome
     Dosage: RECEIVED 6 DOSES
     Route: 065
  5. CYCLOPHOSPHAMIDE [Suspect]
     Active Substance: CYCLOPHOSPHAMIDE
     Indication: Prophylaxis against graft versus host disease
     Dosage: STARTED ON POST TRANSPLANT DAY 3 AND 4
     Route: 065
  6. TACROLIMUS [Concomitant]
     Active Substance: TACROLIMUS
     Indication: Prophylaxis against graft versus host disease
     Dosage: STARTED ON DAY 5
     Route: 065

REACTIONS (8)
  - Atypical haemolytic uraemic syndrome [Recovered/Resolved]
  - Acute kidney injury [Recovered/Resolved]
  - Respiratory failure [Recovered/Resolved]
  - Delayed engraftment [Unknown]
  - Nephrotic syndrome [Recovered/Resolved]
  - Hypervolaemia [Recovered/Resolved]
  - End stage renal disease [Recovered/Resolved]
  - Drug ineffective [Unknown]
